FAERS Safety Report 5987556-2 (Version None)
Quarter: 2008Q4

REPORT INFORMATION
  Report Type: 
  Country: None (occurrence: None)
  Receive Date: 20081209
  Receipt Date: 20081201
  Transmission Date: 20090506
  Serious: Yes (Other)
  Sender: FDA-Public Use
  Company Number: BR-SANOFI-SYNTHELABO-A01200815582

PATIENT
  Sex: Female
  Weight: 11.2 kg

DRUGS (1)
  1. WINTOMYLON [Suspect]
     Indication: URINARY TRACT INFECTION
     Route: 048
     Dates: start: 20081125, end: 20081126

REACTIONS (4)
  - BODY TEMPERATURE DECREASED [None]
  - COLD SWEAT [None]
  - FEELING COLD [None]
  - HYPOTHERMIA [None]
